FAERS Safety Report 23520894 (Version 3)
Quarter: 2024Q1

REPORT INFORMATION
  Report Type: Spontaneous
  Country: US (occurrence: US)
  Receive Date: 20240214
  Receipt Date: 20240312
  Transmission Date: 20240410
  Serious: No
  Sender: FDA-Public Use
  Company Number: US-UNITED THERAPEUTICS-UNT-2024-003929

PATIENT
  Age: 56 Year
  Sex: Male

DRUGS (5)
  1. REMODULIN [Suspect]
     Active Substance: TREPROSTINIL
     Indication: Pulmonary arterial hypertension
     Dosage: 0.03446 ?G/KG, CONTINUING
     Route: 058
  2. REMODULIN [Suspect]
     Active Substance: TREPROSTINIL
     Dosage: 0.03623 ?G/KG, CONTINUING
     Route: 058
  3. REMODULIN [Suspect]
     Active Substance: TREPROSTINIL
     Dosage: 0.038 ?G/KG, CONTINUING
     Route: 058
  4. REMODULIN [Suspect]
     Active Substance: TREPROSTINIL
     Dosage: UNK, CONTINUING
     Route: 058
     Dates: start: 202303
  5. METOLAZONE [Suspect]
     Active Substance: METOLAZONE
     Indication: Oedema
     Dosage: UNK
     Route: 065

REACTIONS (14)
  - Oedema [Recovering/Resolving]
  - Infusion site erythema [Unknown]
  - Infusion site infection [Not Recovered/Not Resolved]
  - Infusion site irritation [Unknown]
  - Intentional medical device removal by patient [Recovered/Resolved]
  - Device use error [Recovered/Resolved]
  - Device use error [Unknown]
  - Device leakage [Recovered/Resolved]
  - Device failure [Recovered/Resolved]
  - Nausea [Not Recovered/Not Resolved]
  - Headache [Unknown]
  - Oxygen saturation decreased [Unknown]
  - Dyspnoea [Unknown]
  - Blood potassium decreased [Unknown]

NARRATIVE: CASE EVENT DATE: 20240201
